FAERS Safety Report 22733733 (Version 11)
Quarter: 2024Q1

REPORT INFORMATION
  Report Type: Report from Study
  Country: US (occurrence: US)
  Receive Date: 20230720
  Receipt Date: 20240312
  Transmission Date: 20240410
  Serious: Yes (Hospitalization, Other)
  Sender: FDA-Public Use
  Company Number: US-ACADIA PHARMACEUTICALS INC.-ACA-2023-TRF-002650

PATIENT
  Age: 11 Year
  Sex: Female

DRUGS (25)
  1. DAYBUE [Suspect]
     Active Substance: TROFINETIDE
     Indication: Rett syndrome
     Dosage: 40 MILLILITER, BID
     Route: 048
  2. DAYBUE [Suspect]
     Active Substance: TROFINETIDE
     Dosage: 25 MILLILITER, BID
     Route: 048
  3. DAYBUE [Suspect]
     Active Substance: TROFINETIDE
     Dosage: 35 MILLILITER, QD
     Route: 048
  4. DAYBUE [Suspect]
     Active Substance: TROFINETIDE
     Dosage: 20 MILLILITER, QD
     Route: 048
     Dates: start: 20230820
  5. DAYBUE [Suspect]
     Active Substance: TROFINETIDE
     Dosage: 40 MILLILITER, BID
     Route: 048
  6. DAYBUE [Suspect]
     Active Substance: TROFINETIDE
     Dosage: 30 MILLILITER, BID
     Route: 048
  7. DAYBUE [Suspect]
     Active Substance: TROFINETIDE
     Dosage: 20 MILLILITER, QD
     Route: 048
  8. DAYBUE [Suspect]
     Active Substance: TROFINETIDE
     Dosage: 25 MILLILITER, BID
     Route: 048
     Dates: start: 20231014
  9. DAYBUE [Suspect]
     Active Substance: TROFINETIDE
     Dosage: 20 MILLILITER, BID (SLOW TITRATION)
     Route: 048
  10. DAYBUE [Suspect]
     Active Substance: TROFINETIDE
     Dosage: 15 MILLILITER IN AM AND 25 MILLILITER IN PM
     Route: 048
  11. DAYBUE [Suspect]
     Active Substance: TROFINETIDE
     Dosage: 25 MILLILITER, QD
     Route: 048
  12. DAYBUE [Suspect]
     Active Substance: TROFINETIDE
     Dosage: 15 ML DOSE IN THE EVENING ONLY
     Route: 048
  13. DAYBUE [Suspect]
     Active Substance: TROFINETIDE
     Dosage: 30 MILLILITER, BID
     Route: 048
     Dates: end: 20231231
  14. DAYBUE [Suspect]
     Active Substance: TROFINETIDE
     Dosage: 30 ML IN THE EVENINGS AND SOMETIMES THEY WILL GET 15ML IN THE AM
     Route: 048
  15. DAYBUE [Suspect]
     Active Substance: TROFINETIDE
     Dosage: 40 MILLILITER, BID
     Route: 048
  16. DAYBUE [Suspect]
     Active Substance: TROFINETIDE
     Dosage: 20 MILLILITER BID
     Route: 048
  17. KEPPRA [Concomitant]
     Active Substance: LEVETIRACETAM
  18. MELATONIN [Concomitant]
     Active Substance: MELATONIN
  19. CLONAZEPAM [Concomitant]
     Active Substance: CLONAZEPAM
  20. CALCIUM CARBONATE [Concomitant]
     Active Substance: CALCIUM CARBONATE
  21. CHOLECALCIFEROL [Concomitant]
     Active Substance: CHOLECALCIFEROL
  22. VITAMINS [Concomitant]
     Active Substance: VITAMINS
  23. ALBUTEROL [Concomitant]
     Active Substance: ALBUTEROL
  24. ATROVENT [Concomitant]
     Active Substance: IPRATROPIUM BROMIDE
  25. IMODIUM [Concomitant]
     Active Substance: LOPERAMIDE HYDROCHLORIDE

REACTIONS (20)
  - Pneumonia [Not Recovered/Not Resolved]
  - Inappropriate schedule of product administration [Not Recovered/Not Resolved]
  - Abdominal distension [Not Recovered/Not Resolved]
  - Underdose [Not Recovered/Not Resolved]
  - Abdominal distension [Recovering/Resolving]
  - Hypophagia [Recovered/Resolved]
  - Flatulence [Recovered/Resolved]
  - Abdominal distension [Recovered/Resolved]
  - Illness [Not Recovered/Not Resolved]
  - Inappropriate schedule of product administration [Not Recovered/Not Resolved]
  - Abdominal distension [Not Recovered/Not Resolved]
  - Hypophagia [Not Recovered/Not Resolved]
  - Decreased appetite [Recovering/Resolving]
  - Diarrhoea [Not Recovered/Not Resolved]
  - Diarrhoea [Recovered/Resolved]
  - Diarrhoea [Not Recovered/Not Resolved]
  - Diarrhoea [Recovering/Resolving]
  - Diarrhoea [Not Recovered/Not Resolved]
  - Diarrhoea [Recovered/Resolved]
  - Diarrhoea [Not Recovered/Not Resolved]

NARRATIVE: CASE EVENT DATE: 20230609
